FAERS Safety Report 7331205-8 (Version None)
Quarter: 2011Q1

REPORT INFORMATION
  Report Type: 
  Country: None (occurrence: None)
  Receive Date: 20110304
  Receipt Date: 20110228
  Transmission Date: 20110831
  Serious: Yes (Disabling)
  Sender: FDA-Public Use
  Company Number: US-PFIZER INC-2011000017

PATIENT
  Sex: Female
  Weight: 98.4 kg

DRUGS (9)
  1. VITAMIN B-12 [Concomitant]
     Dosage: UNK
  2. POTASSIUM [Concomitant]
     Dosage: 10 MG, 2X/DAY
  3. ACETYLSALICYLIC ACID [Concomitant]
     Dosage: 81 MG, UNK
  4. CALCIUM [Concomitant]
     Dosage: UNK
  5. MULTI-VITAMINS [Concomitant]
     Dosage: UNK
  6. LIPITOR [Suspect]
     Indication: HYPERLIPIDAEMIA
     Dosage: 10 MG, DAILY
     Route: 048
     Dates: start: 20101210, end: 20101220
  7. FUROSEMIDE [Concomitant]
     Dosage: 40 MG, DAILY
  8. METFORMIN [Concomitant]
     Indication: DIABETES MELLITUS
     Dosage: 1000 MG AM, 500 MG PM
  9. BENAZEPRIL [Concomitant]
     Indication: HYPERTENSION
     Dosage: 20 MG, DAILY

REACTIONS (6)
  - NECK PAIN [None]
  - MYALGIA [None]
  - MUSCLE SPASMS [None]
  - PAIN [None]
  - SWELLING [None]
  - BONE PAIN [None]
